FAERS Safety Report 4980314-7 (Version None)
Quarter: 2006Q2

REPORT INFORMATION
  Report Type: 
  Country: None (occurrence: None)
  Receive Date: 20060421
  Receipt Date: 20060421
  Transmission Date: 20061013
  Serious: Yes (Disabling)
  Sender: FDA-Public Use
  Company Number: None

PATIENT
  Age: 64 Year
  Sex: Male
  Weight: 75 kg

DRUGS (6)
  1. NEOSTIGMINE 1MG/ML AMERICAN REGENT [Suspect]
     Indication: ANAESTHESIA REVERSAL
     Dosage: 4 MG ONCE IV
     Route: 042
     Dates: start: 20060406, end: 20060406
  2. ISOFLURANE GAS [Concomitant]
  3. LIDOCAINE 1% [Concomitant]
  4. DIPRIVAN [Concomitant]
  5. DILAUDID [Concomitant]
  6. TORADOL [Concomitant]

REACTIONS (1)
  - DRUG INEFFECTIVE [None]
